FAERS Safety Report 11693296 (Version 1)
Quarter: 2015Q4

REPORT INFORMATION
  Report Type: Spontaneous
  Country: US (occurrence: None)
  Receive Date: 20151102
  Receipt Date: 20151102
  Transmission Date: 20160304
  Serious: Yes (Disabling)
  Sender: FDA-Public Use
  Company Number: None

PATIENT
  Age: 54 Year
  Sex: Male
  Weight: 74.84 kg

DRUGS (1)
  1. CIPROFLOXACIN. [Suspect]
     Active Substance: CIPROFLOXACIN
     Indication: PROSTATITIS
     Dosage: 1 PILL TWICE DAILY  ONCE DAILY  TAKEN BY MOUTH
     Route: 048
     Dates: start: 20150818, end: 20150828

REACTIONS (5)
  - Neuralgia [None]
  - Impaired work ability [None]
  - Pain in extremity [None]
  - Gait disturbance [None]
  - Anxiety [None]

NARRATIVE: CASE EVENT DATE: 20150828
